FAERS Safety Report 4419565-9 (Version None)
Quarter: 2004Q3

REPORT INFORMATION
  Report Type: 
  Country: None (occurrence: None)
  Receive Date: 20040809
  Receipt Date: 20040217
  Transmission Date: 20050211
  Serious: No
  Sender: FDA-Public Use
  Company Number: US-GLAXOSMITHKLINE-A0498551A

PATIENT
  Age: 28 Year
  Sex: Female

DRUGS (5)
  1. PAXIL [Suspect]
     Indication: DRUG USE FOR UNKNOWN INDICATION
     Dosage: 40MG UNKNOWN
     Route: 048
  2. PAROXETINE HCL [Suspect]
     Indication: POST-TRAUMATIC STRESS DISORDER
     Dosage: 30MG PER DAY
     Route: 048
     Dates: start: 20031203
  3. XANAX [Concomitant]
  4. AMITRIPTYLINE HCL [Concomitant]
  5. IMITREX [Concomitant]

REACTIONS (3)
  - ADVERSE EVENT [None]
  - ANXIETY [None]
  - DEPRESSION [None]
